FAERS Safety Report 10038037 (Version 1)
Quarter: 2014Q1

REPORT INFORMATION
  Report Type: Spontaneous
  Country: US (occurrence: None)
  Receive Date: 20140306
  Receipt Date: 20140306
  Transmission Date: 20141002
  Serious: Yes (Hospitalization, Other)
  Sender: FDA-Public Use
  Company Number: 163-21880-12032672

PATIENT
  Age: 75 Year
  Sex: Male
  Weight: 92.6 kg

DRUGS (25)
  1. REVLIMID (LENALIDOMIDE) (CAPSULES) [Suspect]
     Indication: PLASMA CELL MYELOMA
     Route: 048
     Dates: start: 20111215, end: 20120320
  2. DEXAMETHASONE (DEXAMETHASONE) [Suspect]
     Indication: PRODUCT USED FOR UNKNOWN INDICATION
     Route: 048
     Dates: start: 20111215, end: 20120320
  3. FILGRASTIM [Concomitant]
  4. LEVOFLOXACIN [Concomitant]
  5. CHONDROITIN (CHONDROITIN) [Concomitant]
  6. VITAMIN E (TOCOPHEROL) [Concomitant]
  7. VITAMIN B COMPLEX (B-KOMPLEX ^LECIVA^) [Concomitant]
  8. MULTIVITAMINS [Concomitant]
  9. FLOVENT (FLUTICASONE PROPIONATE) [Concomitant]
  10. FISH OIL [Concomitant]
  11. CHOLEST OFF (CHOLEST OFF NATURE MADE) [Concomitant]
  12. CALCIUM CARBONATE [Concomitant]
  13. ALBUTEROL (SALBUTAMOL) [Concomitant]
  14. ZOMETA (ZOLEDRONIC ACID) [Concomitant]
  15. VITAMIN D (ERGOCALCIFEROL) [Concomitant]
  16. NEURONTIN (GABAPENTIN) [Concomitant]
  17. LEVAQUIN (LEVOFLOXACIN) [Concomitant]
  18. GUAIFENESIN [Concomitant]
  19. GLUCOSAMINE [Concomitant]
  20. BACTRIM [Concomitant]
  21. AZITHROMYCIN [Concomitant]
  22. AUGMENTIN [Concomitant]
  23. ASPIRIN (ACETYLSALICYLIC ACID) [Concomitant]
  24. RED BLOOD CELLS [Concomitant]
  25. ARANESP (DARBEPOETIN ALFA) [Concomitant]

REACTIONS (4)
  - Acute sinusitis [None]
  - Bronchitis [None]
  - Cough [None]
  - Dyspnoea [None]
